FAERS Safety Report 22051441 (Version 1)
Quarter: 2023Q1

REPORT INFORMATION
  Report Type: Report from Study
  Country: US (occurrence: US)
  Receive Date: 20230301
  Receipt Date: 20230301
  Transmission Date: 20230417
  Serious: No
  Sender: FDA-Public Use
  Company Number: US-INCYTE CORPORATION-2023IN000780

PATIENT

DRUGS (1)
  1. JAKAFI [Suspect]
     Active Substance: RUXOLITINIB
     Indication: Polycythaemia vera
     Dosage: 1 TABLET OF 10MG IN THE MORNING AND 2 TABLETS OF 5MG IN THE EVENING
     Route: 065

REACTIONS (4)
  - COVID-19 [Unknown]
  - Memory impairment [Unknown]
  - Confusional state [Unknown]
  - Depressed mood [Unknown]
